FAERS Safety Report 9314568 (Version 1)
Quarter: 2013Q2

REPORT INFORMATION
  Report Type: Spontaneous
  Country: TR (occurrence: None)
  Receive Date: 20130524
  Receipt Date: 20130524
  Transmission Date: 20140414
  Serious: Yes (Hospitalization, Other)
  Sender: FDA-Public Use
  Company Number: CC400180505

PATIENT
  Sex: Male

DRUGS (1)
  1. CEFTRIAXONE [Suspect]
     Indication: LOWER RESPIRATORY TRACT INFECTION
     Route: 030

REACTIONS (7)
  - Hypersensitivity [None]
  - Acute coronary syndrome [None]
  - Erythema [None]
  - Ocular hyperaemia [None]
  - Dyspnoea [None]
  - Chest pain [None]
  - Myocardial infarction [None]
